FAERS Safety Report 5216702-3 (Version None)
Quarter: 2007Q1

REPORT INFORMATION
  Report Type: 
  Country: None (occurrence: None)
  Receive Date: 20061130
  Receipt Date: 20060929
  Transmission Date: 20070707
  Serious: Yes (Hospitalization)
  Sender: FDA-Public Use
  Company Number: US200603003345

PATIENT
  Age: 61 Year
  Sex: Male
  Weight: 97.5 kg

DRUGS (4)
  1. ZYPREXA [Suspect]
     Dosage: 15 MG
     Dates: start: 20030201, end: 20040101
  2. MIRTAZAPINE [Concomitant]
  3. LEXAPRO /USA/ (ESCITALOPRAM) [Concomitant]
  4. SEROQUEL [Concomitant]

REACTIONS (2)
  - DIABETES MELLITUS [None]
  - HYPERGLYCAEMIA [None]
